FAERS Safety Report 25751469 (Version 2)
Quarter: 2025Q3

REPORT INFORMATION
  Report Type: Spontaneous
  Country: JP (occurrence: JP)
  Receive Date: 20250902
  Receipt Date: 20250910
  Transmission Date: 20251020
  Serious: Yes (Disabling, Other)
  Sender: SANOFI AVENTIS
  Company Number: JP-DialogSolutions-SAAVPROD-PI815142-C1

PATIENT
  Age: 45 Year
  Sex: Male

DRUGS (10)
  1. DUPILUMAB [Suspect]
     Active Substance: DUPILUMAB
     Indication: Allergic bronchopulmonary mycosis
  2. DUPILUMAB [Suspect]
     Active Substance: DUPILUMAB
     Indication: Bronchial secretion retention
  3. PREDNISOLONE [Suspect]
     Active Substance: PREDNISOLONE
     Indication: Allergic bronchopulmonary mycosis
  4. PREDNISOLONE [Suspect]
     Active Substance: PREDNISOLONE
     Indication: Aspergillus infection
     Dosage: 6 MG, QD
  5. PREDNISOLONE [Suspect]
     Active Substance: PREDNISOLONE
     Indication: Bronchial secretion retention
  6. CORTICOSTEROID NOS [Suspect]
     Active Substance: CORTICOSTEROID NOS
     Indication: Cough
     Route: 055
  7. CORTICOSTEROID NOS [Suspect]
     Active Substance: CORTICOSTEROID NOS
     Indication: Productive cough
  8. ITRACONAZOLE [Concomitant]
     Active Substance: ITRACONAZOLE
     Indication: Allergic bronchopulmonary mycosis
  9. ITRACONAZOLE [Concomitant]
     Active Substance: ITRACONAZOLE
     Indication: Bronchial secretion retention
  10. ITRACONAZOLE [Concomitant]
     Active Substance: ITRACONAZOLE
     Indication: Aspergillus infection

REACTIONS (3)
  - Central serous chorioretinopathy [Unknown]
  - Off label use [Unknown]
  - Drug effective for unapproved indication [Unknown]
